FAERS Safety Report 23215217 (Version 1)
Quarter: 2023Q4

REPORT INFORMATION
  Report Type: Spontaneous
  Country: US (occurrence: US)
  Receive Date: 20231122
  Receipt Date: 20231122
  Transmission Date: 20240110
  Serious: No
  Sender: FDA-Public Use
  Company Number: US-drreddys-SPO/USA/23/0181984

PATIENT
  Age: 62 Year
  Sex: Female

DRUGS (8)
  1. EXEMESTANE [Suspect]
     Active Substance: EXEMESTANE
     Indication: Hormone receptor positive breast cancer
     Route: 048
     Dates: start: 202010, end: 2021
  2. NICOTINE [Concomitant]
     Active Substance: NICOTINE
     Indication: Smoking cessation therapy
     Dosage: 1 PATCH APPLIED TOPICALLY DAILY
     Route: 061
  3. TIOTROPIUM [Concomitant]
     Active Substance: TIOTROPIUM
     Indication: Chronic obstructive pulmonary disease
     Dosage: 2 INHALATIONS ORALLY ONCE DAILY
     Route: 048
  4. ALBUTEROL [Concomitant]
     Active Substance: ALBUTEROL
     Indication: Chronic obstructive pulmonary disease
     Dosage: 1 PUFF INHALED EVERY 4?6 H AS NEEDED
  5. ALBUTEROL [Concomitant]
     Active Substance: ALBUTEROL
     Dosage: 1 PUFF INHALED EVERY 4?6 H AS  NEEDED
  6. FLUTICASONE, SALMETEROL [Concomitant]
     Indication: Chronic obstructive pulmonary disease
     Dosage: 1 INHALATION ORALLY TWICE DAILY
     Route: 048
  7. LISINOPRIL [Concomitant]
     Active Substance: LISINOPRIL
     Indication: Hypertension
     Route: 048
  8. IPRATROPIUM,  ALBUTEROL [Concomitant]
     Indication: Chronic obstructive pulmonary disease
     Dosage: 1 NEBULIZED AMPULE INHALED ORALLY EVERY 6 H AS NEEDED
     Route: 048

REACTIONS (4)
  - Asthenia [Unknown]
  - Fatigue [Unknown]
  - Hot flush [Recovering/Resolving]
  - Alopecia [Unknown]

NARRATIVE: CASE EVENT DATE: 20200101
